FAERS Safety Report 4694535-4 (Version None)
Quarter: 2005Q2

REPORT INFORMATION
  Report Type: 
  Country: None (occurrence: None)
  Receive Date: 20050620
  Receipt Date: 20050608
  Transmission Date: 20051028
  Serious: Yes (Hospitalization)
  Sender: FDA-Public Use
  Company Number: US-GLAXOSMITHKLINE-A0561752A

PATIENT
  Age: 56 Year
  Sex: Female

DRUGS (1)
  1. COMMIT [Suspect]
     Route: 002
     Dates: start: 20050529

REACTIONS (2)
  - MENTAL DISORDER [None]
  - TONGUE ULCERATION [None]
